FAERS Safety Report 5142699-0 (Version None)
Quarter: 2006Q4

REPORT INFORMATION
  Report Type: 
  Country: None (occurrence: None)
  Receive Date: 20061102
  Receipt Date: 20060803
  Transmission Date: 20070319
  Serious: Yes (Hospitalization)
  Sender: FDA-Public Use
  Company Number: US-ABBOTT-06P-163-0339491-00

PATIENT
  Sex: Male
  Weight: 65.83 kg

DRUGS (3)
  1. DEPAKOTE ER [Suspect]
     Indication: BIPOLAR DISORDER
     Route: 048
     Dates: start: 20051213, end: 20060201
  2. DEPAKOTE ER [Suspect]
     Indication: MANIA
  3. DEPAKOTE ER [Suspect]
     Indication: PSYCHOTIC DISORDER

REACTIONS (6)
  - HEADACHE [None]
  - HOSPITALISATION [None]
  - HYPERSENSITIVITY [None]
  - MANIA [None]
  - PRURITUS [None]
  - SKIN EXFOLIATION [None]
